FAERS Safety Report 15087429 (Version 1)
Quarter: 2018Q2

REPORT INFORMATION
  Report Type: Report from Study
  Country: GB (occurrence: GB)
  Receive Date: 20180628
  Receipt Date: 20180628
  Transmission Date: 20180711
  Serious: Yes (Other)
  Sender: FDA-Public Use
  Company Number: GB-AMGEN-GBRNI2018088379

PATIENT
  Age: 76 Year
  Sex: Male

DRUGS (1)
  1. ETANERCEPT [Suspect]
     Active Substance: ETANERCEPT
     Indication: RHEUMATOID ARTHRITIS
     Dosage: 25 MG, UNK
     Route: 058
     Dates: start: 20041215, end: 20050312

REACTIONS (2)
  - Basal cell carcinoma [Recovered/Resolved]
  - Small cell carcinoma [Recovered/Resolved]

NARRATIVE: CASE EVENT DATE: 20170719
